FAERS Safety Report 4441426-X (Version None)
Quarter: 2004Q3

REPORT INFORMATION
  Report Type: 
  Country: None (occurrence: None)
  Receive Date: 20040728
  Receipt Date: 20040408
  Transmission Date: 20050211
  Serious: No
  Sender: FDA-Public Use
  Company Number: USA040464435

PATIENT
  Age: 53 Year
  Sex: Male
  Weight: 91 kg

DRUGS (4)
  1. STRATTERA [Suspect]
     Indication: ATTENTION DEFICIT/HYPERACTIVITY DISORDER
     Dosage: 50 MG DAY
  2. PAXIL [Concomitant]
  3. LIPITOR [Concomitant]
  4. BENICAR (BENICAR) [Concomitant]

REACTIONS (2)
  - POLLAKIURIA [None]
  - URINARY HESITATION [None]
